FAERS Safety Report 8115305-0 (Version None)
Quarter: 2012Q1

REPORT INFORMATION
  Report Type: 
  Country: None (occurrence: None)
  Receive Date: 20120206
  Receipt Date: 20120128
  Transmission Date: 20120608
  Serious: Yes (Other)
  Sender: FDA-Public Use
  Company Number: GB-JNJFOC-20120201403

PATIENT
  Sex: Male

DRUGS (3)
  1. NICORETTE [Suspect]
     Indication: SMOKING CESSATION THERAPY
     Route: 048
  2. NICOTINE [Suspect]
     Indication: SMOKING CESSATION THERAPY
     Route: 062
     Dates: start: 20120101
  3. NICOTINE [Suspect]
     Route: 062

REACTIONS (5)
  - HAEMOPTYSIS [None]
  - MALAISE [None]
  - DYSPEPSIA [None]
  - HICCUPS [None]
  - THROAT IRRITATION [None]
